FAERS Safety Report 7984553-2 (Version None)
Quarter: 2011Q4

REPORT INFORMATION
  Report Type: 
  Country: None (occurrence: None)
  Receive Date: 20111216
  Receipt Date: 20111206
  Transmission Date: 20120403
  Serious: Yes (Other)
  Sender: FDA-Public Use
  Company Number: CA-ASTELLAS-2011US008409

PATIENT

DRUGS (3)
  1. ERLOTINIB HYDROCHLORIDE [Suspect]
     Dosage: 600 MG, WEEKLY
     Route: 048
  2. ERLOTINIB HYDROCHLORIDE [Suspect]
     Indication: NON-SMALL CELL LUNG CANCER
     Route: 048
  3. DOCETAXEL [Suspect]
     Indication: NON-SMALL CELL LUNG CANCER
     Dosage: 70 MG/M2, CYCLIC, Q21 DAYS
     Route: 042

REACTIONS (2)
  - INAPPROPRIATE SCHEDULE OF DRUG ADMINISTRATION [None]
  - PULMONARY EMBOLISM [None]
